FAERS Safety Report 7849544-0 (Version None)
Quarter: 2011Q4

REPORT INFORMATION
  Report Type: 
  Country: None (occurrence: None)
  Receive Date: 20111024
  Receipt Date: 20110929
  Transmission Date: 20120403
  Serious: Yes (Hospitalization)
  Sender: FDA-Public Use
  Company Number: ADL-2011-00132

PATIENT
  Age: 56 Year
  Sex: Male

DRUGS (1)
  1. FENTANYL CITRATE [Suspect]
     Indication: BREAKTHROUGH PAIN
     Dosage: FOUR TIMES PER DAY AS NEEDED
     Dates: start: 20080228

REACTIONS (6)
  - PYELONEPHRITIS [None]
  - STREPTOCOCCUS TEST POSITIVE [None]
  - ESCHERICHIA TEST POSITIVE [None]
  - PULMONARY EMBOLISM [None]
  - NAUSEA [None]
  - ENTEROCOCCUS TEST POSITIVE [None]
